FAERS Safety Report 20163739 (Version 5)
Quarter: 2022Q3

REPORT INFORMATION
  Report Type: Report from Study
  Country: US (occurrence: US)
  Receive Date: 20211209
  Receipt Date: 20220803
  Transmission Date: 20221027
  Serious: No
  Sender: FDA-Public Use
  Company Number: US-NOVARTISTESTPH-NVSC2021US281507

PATIENT
  Age: 73 Year
  Sex: Male

DRUGS (4)
  1. ENTRESTO [Suspect]
     Active Substance: SACUBITRIL\VALSARTAN
     Indication: Product used for unknown indication
     Dosage: 1 DOSAGE FORM, BID (49/51MG)
     Route: 048
     Dates: start: 202102
  2. EPLERENONE [Suspect]
     Active Substance: EPLERENONE
     Indication: Product used for unknown indication
     Dosage: UNK
     Route: 065
     Dates: start: 20211219
  3. ATORVASTATIN [Suspect]
     Active Substance: ATORVASTATIN
     Indication: Product used for unknown indication
     Dosage: 80 MG, QD
     Route: 065
  4. SPIRONOLACTONE [Suspect]
     Active Substance: SPIRONOLACTONE
     Indication: Peripheral swelling
     Dosage: UNK
     Route: 065
     Dates: end: 202112

REACTIONS (8)
  - Nipple swelling [Recovering/Resolving]
  - Oropharyngeal pain [Unknown]
  - Pollakiuria [Unknown]
  - Platelet count decreased [Unknown]
  - Peripheral swelling [Unknown]
  - Gastrooesophageal reflux disease [Unknown]
  - Sinus disorder [Unknown]
  - Dizziness [Recovering/Resolving]

NARRATIVE: CASE EVENT DATE: 20210301
